FAERS Safety Report 4717279-9 (Version None)
Quarter: 2005Q3

REPORT INFORMATION
  Report Type: 
  Country: None (occurrence: None)
  Receive Date: 20050715
  Receipt Date: 20050706
  Transmission Date: 20060218
  Serious: Yes (Hospitalization)
  Sender: FDA-Public Use
  Company Number: 2005-02341

PATIENT
  Age: 55 Year
  Sex: Male

DRUGS (7)
  1. TRAMADOL HCL [Suspect]
     Indication: PAIN IN EXTREMITY
     Dosage: 50 MG, BID, ORAL
     Route: 048
     Dates: start: 20050101
  2. ENALAPRIL MALEATE [Suspect]
     Dosage: 20 MG BID
     Dates: end: 20050101
  3. ENALAPRIL MALEATE [Suspect]
     Dosage: 20 MG BID
     Dates: start: 20050101
  4. SOTALOL HCL [Concomitant]
  5. BENDROFLUMETHIAZIDE (BENDROFLUMETHIAZIDE) [Concomitant]
  6. POTASSIUM CHLORIDE [Concomitant]
  7. ALLOPURINOL [Concomitant]

REACTIONS (1)
  - ANGIONEUROTIC OEDEMA [None]
